FAERS Safety Report 7400145-8 (Version None)
Quarter: 2011Q2

REPORT INFORMATION
  Report Type: 
  Country: None (occurrence: None)
  Receive Date: 20110405
  Receipt Date: 20110405
  Transmission Date: 20111010
  Serious: No
  Sender: FDA-Public Use
  Company Number: None

PATIENT
  Sex: Male
  Weight: 88.4514 kg

DRUGS (2)
  1. HYOMAX - SR 0.375 MG TAB 0.375 MG ARISTOS PHARM [Suspect]
     Indication: GASTROINTESTINAL DISORDER
     Dosage: 0.375 MG TWICE DAILY PO
     Route: 048
     Dates: start: 20080101, end: 20110330
  2. HYOMAX - SR 0.375 MG TAB 0.375 MG ARISTOS PHARM [Suspect]
     Indication: MUSCLE SPASTICITY
     Dosage: 0.375 MG TWICE DAILY PO
     Route: 048
     Dates: start: 20080101, end: 20110330

REACTIONS (4)
  - PRODUCT SOLUBILITY ABNORMAL [None]
  - MEDICATION RESIDUE [None]
  - DRUG INEFFECTIVE [None]
  - PRODUCT FORMULATION ISSUE [None]
